FAERS Safety Report 9973566 (Version 2)
Quarter: 2014Q1

REPORT INFORMATION
  Report Type: Spontaneous
  Country: US (occurrence: US)
  Receive Date: 20140306
  Receipt Date: 20140310
  Transmission Date: 20141002
  Serious: Yes (Hospitalization)
  Sender: FDA-Public Use
  Company Number: PHEH2014US004510

PATIENT
  Age: 21 Year
  Sex: Male

DRUGS (2)
  1. FORADIL [Suspect]
     Indication: DYSPNOEA
     Dosage: UNK UKN, UNK
     Route: 055
  2. ALBUTEROL [Concomitant]
     Dosage: UNK UKN, UNK
     Route: 055

REACTIONS (5)
  - Dehydration [Recovered/Resolved]
  - Respiratory tract infection [Unknown]
  - Wrong technique in drug usage process [Unknown]
  - Incorrect dose administered [Unknown]
  - Device breakage [Unknown]
